FAERS Safety Report 6543508-5 (Version None)
Quarter: 2010Q1

REPORT INFORMATION
  Report Type: 
  Country: None (occurrence: None)
  Receive Date: 20100120
  Receipt Date: 20100113
  Transmission Date: 20100710
  Serious: Yes (Hospitalization)
  Sender: FDA-Public Use
  Company Number: B0625483A

PATIENT
  Sex: Female

DRUGS (3)
  1. PAZOPANIB [Suspect]
     Indication: SARCOMA
     Dosage: 800MG PER DAY
     Route: 048
     Dates: start: 20091125
  2. NIFEDIPINE [Concomitant]
     Indication: HYPERTENSION
     Dosage: 30MG PER DAY
     Route: 048
     Dates: start: 20091224
  3. CELECOXIB [Concomitant]
     Indication: TUMOUR PAIN
     Dosage: 100MG TWICE PER DAY
     Route: 048
     Dates: start: 20091224

REACTIONS (2)
  - DYSPNOEA [None]
  - PNEUMOTHORAX [None]
